FAERS Safety Report 5653723-0 (Version None)
Quarter: 2008Q1

REPORT INFORMATION
  Report Type: 
  Country: None (occurrence: None)
  Receive Date: 20080204
  Receipt Date: 20070411
  Transmission Date: 20080703
  Serious: Yes (Hospitalization)
  Sender: FDA-Public Use
  Company Number: PHEH2007US05121

PATIENT
  Age: 29 Year
  Sex: Male

DRUGS (2)
  1. RITALIN [Suspect]
  2. FOCALIN XR (DEXMETHYLPHENIDATE HYDROCHLORIDE) [Suspect]

REACTIONS (1)
  - CEREBROVASCULAR ACCIDENT [None]
